FAERS Safety Report 8436988-1 (Version None)
Quarter: 2012Q2

REPORT INFORMATION
  Report Type: 
  Country: None (occurrence: None)
  Receive Date: 20120614
  Receipt Date: 20120402
  Transmission Date: 20120825
  Serious: No
  Sender: FDA-Public Use
  Company Number: US-AMGEN-USASP2012020781

PATIENT
  Sex: Female
  Weight: 61.2 kg

DRUGS (4)
  1. ARANESP [Suspect]
     Indication: ANAEMIA
     Dosage: 200 UNK, UNK
     Dates: start: 20120328
  2. ASPIRIN [Concomitant]
  3. ALDACTAZIDE [Concomitant]
  4. REVLIMID [Suspect]

REACTIONS (4)
  - SWELLING [None]
  - URINE OUTPUT INCREASED [None]
  - BLOOD PRESSURE INCREASED [None]
  - ABDOMINAL DISTENSION [None]
